FAERS Safety Report 21371778 (Version 1)
Quarter: 2022Q3

REPORT INFORMATION
  Report Type: Spontaneous
  Country: US (occurrence: None)
  Receive Date: 20220922
  Receipt Date: 20220922
  Transmission Date: 20221027
  Serious: Yes (Hospitalization)
  Sender: FDA-Public Use
  Company Number: None

PATIENT
  Age: 76 Year
  Sex: Female

DRUGS (16)
  1. OPSUMIT [Suspect]
     Active Substance: MACITENTAN
     Indication: Pulmonary arterial hypertension
     Dosage: FREQUENCY : DAILY;?
     Route: 048
     Dates: start: 20190314
  2. ASPIRIN [Concomitant]
  3. ALBUTEROL HFA [Concomitant]
  4. METOPROLOL [Concomitant]
     Active Substance: METOPROLOL
  5. GLIPIZIDE [Concomitant]
  6. ATORVASTATIN [Concomitant]
  7. GLUCAGON [Concomitant]
     Active Substance: GLUCAGON
  8. INSULIN REGULAR HUMAN [Concomitant]
  9. HEPARIN [Concomitant]
  10. BISACODYL [Concomitant]
  11. DOCUSATE SODIUM [Concomitant]
  12. SENNOSIDES [Concomitant]
  13. PRAMIPEXOLE [Concomitant]
  14. DUONEB INHL NEB SOLN [Concomitant]
  15. INSULIN NPH HUMAN [Concomitant]
  16. TYLENOL [Concomitant]

REACTIONS (4)
  - Dyspnoea [None]
  - Diarrhoea [None]
  - Malaise [None]
  - Dialysis [None]

NARRATIVE: CASE EVENT DATE: 20220827
